FAERS Safety Report 14678760 (Version 2)
Quarter: 2018Q2

REPORT INFORMATION
  Report Type: Spontaneous
  Country: PL (occurrence: PL)
  Receive Date: 20180326
  Receipt Date: 20180424
  Transmission Date: 20180711
  Serious: Yes (Hospitalization, Other)
  Sender: FDA-Public Use
  Company Number: PL-AUROBINDO-AUR-APL-2018-016122

PATIENT
  Age: 9 Year
  Sex: Female

DRUGS (2)
  1. AZITHROMYCIN ANHYDROUS. [Suspect]
     Active Substance: AZITHROMYCIN ANHYDROUS
     Indication: PRODUCT USED FOR UNKNOWN INDICATION
     Dosage: UNK
     Route: 065
  2. AMOXICILLIN+CLAVULANIC ACID [Suspect]
     Active Substance: AMOXICILLIN\CLAVULANIC ACID
     Indication: PRODUCT USED FOR UNKNOWN INDICATION
     Dosage: 2 DF, UNK
     Route: 065

REACTIONS (15)
  - Pyrexia [Unknown]
  - Breath sounds abnormal [Unknown]
  - Myalgia [Unknown]
  - Mobility decreased [Unknown]
  - Infectious pleural effusion [Unknown]
  - Inflammation [Unknown]
  - Dyspnoea [Unknown]
  - Mucosal dryness [Unknown]
  - Chest pain [Unknown]
  - Lung infiltration [Unknown]
  - Cough [Unknown]
  - Asthenia [Unknown]
  - Tachypnoea [Unknown]
  - Drug ineffective [Unknown]
  - Condition aggravated [Unknown]
